FAERS Safety Report 6580285-6 (Version None)
Quarter: 2010Q1

REPORT INFORMATION
  Report Type: 
  Country: None (occurrence: None)
  Receive Date: 20100212
  Receipt Date: 20100201
  Transmission Date: 20100710
  Serious: Yes (Hospitalization)
  Sender: FDA-Public Use
  Company Number: JP-ASTRAZENECA-2009SE33641

PATIENT
  Age: 74 Year
  Sex: Male

DRUGS (8)
  1. MEROPENEM [Suspect]
     Indication: PNEUMONIA
     Route: 042
     Dates: start: 20091121, end: 20091128
  2. MINOPEN [Concomitant]
     Indication: PNEUMONIA
     Dates: start: 20091121, end: 20091203
  3. DIFLUCAN [Concomitant]
     Indication: PNEUMONIA
     Dates: start: 20091121, end: 20091126
  4. SOLU-MEDROL [Concomitant]
     Indication: RESPIRATORY FAILURE
     Dates: start: 20091121, end: 20091123
  5. VENOGLOBULIN [Concomitant]
     Indication: PNEUMONIA
     Dates: start: 20091121, end: 20091123
  6. MYSLEE [Concomitant]
     Indication: INSOMNIA
     Route: 048
     Dates: start: 20091124, end: 20091126
  7. RISPERDAL [Concomitant]
     Indication: INSOMNIA
     Route: 048
     Dates: start: 20091126, end: 20091127
  8. DIGOSIN [Concomitant]
     Indication: ATRIAL FIBRILLATION
     Route: 048
     Dates: start: 20091129

REACTIONS (1)
  - DEPRESSED LEVEL OF CONSCIOUSNESS [None]
